FAERS Safety Report 6342873-1 (Version None)
Quarter: 2009Q3

REPORT INFORMATION
  Report Type: 
  Country: None (occurrence: None)
  Receive Date: 20090908
  Receipt Date: 20090904
  Transmission Date: 20100115
  Serious: Yes (Disabling, Other)
  Sender: FDA-Public Use
  Company Number: IT-BRISTOL-MYERS SQUIBB COMPANY-14760284

PATIENT
  Age: 80 Year
  Sex: Female

DRUGS (10)
  1. COUMADIN [Suspect]
     Route: 048
     Dates: start: 20090127, end: 20090826
  2. PANTORC [Concomitant]
  3. KALIUM RETARD [Concomitant]
     Dosage: RETARD
  4. FOSAMAX [Concomitant]
  5. NAPRILENE [Concomitant]
  6. DELTACORTENE [Concomitant]
  7. DILTIAZEM [Concomitant]
  8. ZYLORIC [Concomitant]
  9. LASIX [Concomitant]
  10. TAPAZOLE [Concomitant]

REACTIONS (2)
  - CEREBRAL HAEMORRHAGE [None]
  - FALL [None]
